FAERS Safety Report 14692927 (Version 1)
Quarter: 2018Q1

REPORT INFORMATION
  Report Type: Report from Study
  Country: CO (occurrence: CO)
  Receive Date: 20180329
  Receipt Date: 20180329
  Transmission Date: 20180509
  Serious: Yes (Hospitalization, Other)
  Sender: FDA-Public Use
  Company Number: CO-AMGEN-COLSL2018040273

PATIENT
  Age: 74 Year
  Sex: Male

DRUGS (1)
  1. MIMPARA [Suspect]
     Active Substance: CINACALCET HYDROCHLORIDE
     Indication: HYPERPARATHYROIDISM SECONDARY
     Dosage: UNK, QD
     Route: 048
     Dates: start: 20161025, end: 20170321

REACTIONS (7)
  - Dysuria [Unknown]
  - Hyperhidrosis [Not Recovered/Not Resolved]
  - Jaundice [Not Recovered/Not Resolved]
  - Pyuria [Unknown]
  - Hypoxia [Not Recovered/Not Resolved]
  - Hospitalisation [Unknown]
  - Feeling abnormal [Not Recovered/Not Resolved]

NARRATIVE: CASE EVENT DATE: 201801
